FAERS Safety Report 4951099-5 (Version None)
Quarter: 2006Q1

REPORT INFORMATION
  Report Type: 
  Country: None (occurrence: None)
  Receive Date: 20060322
  Receipt Date: 20050909
  Transmission Date: 20060701
  Serious: Yes (Hospitalization, Other)
  Sender: FDA-Public Use
  Company Number: US-MERCK-0509USA01687

PATIENT
  Age: 70 Year
  Sex: Male
  Weight: 90 kg

DRUGS (13)
  1. VIOXX [Suspect]
     Indication: OSTEOARTHRITIS
     Route: 048
     Dates: start: 20010701, end: 20040601
  2. HYDRODIURIL [Concomitant]
     Route: 065
  3. LESCOL [Concomitant]
     Route: 065
  4. DILTIAZEM MALATE [Concomitant]
     Route: 065
  5. TOPROL-XL [Concomitant]
     Route: 065
     Dates: start: 20021028
  6. PEPCID [Concomitant]
     Route: 065
  7. ENALAPRIL MALEATE [Concomitant]
     Route: 065
  8. ACETAMINOPHEN AND HYDROCODONE BITARTRATE [Concomitant]
     Route: 065
  9. [THERAPY UNSPECIFIED] [Concomitant]
     Route: 065
  10. LEVAQUIN [Concomitant]
     Route: 065
  11. DICYCLOMINE HYDROCHLORIDE [Concomitant]
     Route: 065
  12. ASPIRIN [Concomitant]
     Route: 065
     Dates: start: 19980101
  13. VITAMINS (UNSPECIFIED) [Concomitant]
     Route: 065

REACTIONS (14)
  - ACUTE MYOCARDIAL INFARCTION [None]
  - ANAEMIA [None]
  - ANGINA UNSTABLE [None]
  - ARTERIOSCLEROSIS [None]
  - ARTHROPATHY [None]
  - BUNDLE BRANCH BLOCK RIGHT [None]
  - CAROTID ARTERY DISEASE [None]
  - CHEST PAIN [None]
  - CORONARY ARTERY OCCLUSION [None]
  - DIVERTICULUM [None]
  - HEART VALVE INSUFFICIENCY [None]
  - HYPOGONADISM [None]
  - OSTEOPOROSIS [None]
  - RENAL FAILURE ACUTE [None]
